FAERS Safety Report 4509983-2 (Version None)
Quarter: 2004Q4

REPORT INFORMATION
  Report Type: 
  Country: None (occurrence: None)
  Receive Date: 20041124
  Receipt Date: 20030905
  Transmission Date: 20050328
  Serious: Yes (Hospitalization)
  Sender: FDA-Public Use
  Company Number: JP-ABBOTT-03P-087-0233135-00

PATIENT
  Sex: Male

DRUGS (29)
  1. NORVIR [Suspect]
     Indication: HIV INFECTION
     Route: 048
     Dates: start: 19990929, end: 20021028
  2. KALETRA [Suspect]
     Indication: HIV INFECTION
     Route: 048
     Dates: start: 20030219
  3. DIDANOSINE [Suspect]
     Indication: HIV INFECTION
     Route: 048
     Dates: start: 20020401, end: 20021028
  4. STAVUDINE [Suspect]
     Indication: HIV INFECTION
     Route: 048
     Dates: start: 20020401, end: 20021021
  5. SAQUINAVIR [Suspect]
     Indication: HIV INFECTION
     Route: 048
     Dates: start: 20020401, end: 20021028
  6. ABACAVIR [Suspect]
     Indication: HIV INFECTION
     Route: 048
     Dates: start: 20021022, end: 20021028
  7. POLAPREZINC [Suspect]
     Indication: GASTRITIS
     Route: 048
     Dates: start: 20020401, end: 20021028
  8. POLAPREZINC [Suspect]
     Route: 048
     Dates: start: 20021224, end: 20030623
  9. BLOOD COAGULATION FACTORS [Concomitant]
     Indication: FACTOR VIII DEFICIENCY
     Dosage: 5-6 KU
     Route: 042
     Dates: start: 20020401
  10. MEFENAMIC ACID [Concomitant]
     Indication: HEADACHE
     Route: 048
     Dates: start: 20020401, end: 20021028
  11. MEFENAMIC ACID [Concomitant]
     Route: 048
     Dates: start: 20030108
  12. BROTIZOLAM [Concomitant]
     Indication: INSOMNIA
     Route: 048
     Dates: start: 20020401, end: 20021028
  13. BROTIZOLAM [Concomitant]
     Route: 048
     Dates: start: 20021224
  14. SENNOSIDE [Concomitant]
     Indication: CONSTIPATION
     Route: 048
     Dates: start: 20020401, end: 20021028
  15. SENNOSIDE [Concomitant]
     Route: 048
     Dates: start: 20021224
  16. OMEPRAZOLE [Concomitant]
     Indication: GASTRIC ULCER
     Route: 048
     Dates: start: 20021029, end: 20021125
  17. LOXOPROFEN SODIUM [Concomitant]
     Indication: HEADACHE
     Route: 048
     Dates: start: 20021224, end: 20030107
  18. TRIAZOLAM [Concomitant]
     Indication: INSOMNIA
     Route: 048
     Dates: start: 20021226, end: 20030108
  19. ITOPRIDE HYDROCHLORIDE [Concomitant]
     Indication: GASTRITIS
     Route: 048
     Dates: start: 20030109
  20. MAGNESIUM OXIDE [Concomitant]
     Indication: CONSTIPATION
     Route: 048
     Dates: start: 20021028, end: 20021202
  21. MAGNESIUM OXIDE [Concomitant]
     Route: 048
     Dates: start: 20030107
  22. LAMIVUDINE [Concomitant]
     Indication: HIV INFECTION
     Route: 048
     Dates: start: 20030219
  23. TENOFOVIR [Concomitant]
     Indication: HIV INFECTION
     Route: 048
     Dates: start: 20030219
  24. RIBAVIRIN [Concomitant]
     Indication: HEPATITIS C
     Route: 048
     Dates: start: 20020805, end: 20021028
  25. OCTOCOG ALFA [Concomitant]
     Indication: FACTOR VIII DEFICIENCY
     Route: 042
     Dates: start: 20030610
  26. DIGESTIVE ENZYME PREPARATION [Concomitant]
     Indication: GASTRITIS
     Route: 048
     Dates: start: 20030919
  27. LORAZEPAM [Concomitant]
     Indication: GASTRITIS
     Route: 048
     Dates: start: 20030921, end: 20031127
  28. LORAZEPAM [Concomitant]
     Indication: NAUSEA
  29. LORAZEPAM [Concomitant]
     Indication: VOMITING

REACTIONS (10)
  - ANAEMIA [None]
  - APHTHOUS STOMATITIS [None]
  - BEHCET'S SYNDROME [None]
  - DISSEMINATED INTRAVASCULAR COAGULATION [None]
  - GASTRIC ULCER [None]
  - GASTRITIS [None]
  - HYPERLACTACIDAEMIA [None]
  - ILEAL ULCER [None]
  - MELAENA [None]
  - PANCREATITIS ACUTE [None]
